FAERS Safety Report 9444630 (Version 1)
Quarter: 2013Q3

REPORT INFORMATION
  Report Type: Spontaneous
  Country: US (occurrence: US)
  Receive Date: 20130807
  Receipt Date: 20130807
  Transmission Date: 20140515
  Serious: Yes (Hospitalization)
  Sender: FDA-Public Use
  Company Number: US-BAYER-2013-094149

PATIENT
  Age: 25 Year
  Sex: Female

DRUGS (18)
  1. YASMIN [Suspect]
  2. PREDNISONE [Concomitant]
  3. LEVOTHROID [Concomitant]
  4. CELLCEPT [Concomitant]
     Dosage: UNK
     Dates: start: 20040903
  5. AMITRIPTYLINE [Concomitant]
  6. TRAMADOL [Concomitant]
  7. TYLENOL ARTHRITIS [Concomitant]
  8. PHENERGAN [Concomitant]
  9. MORPHINE [Concomitant]
  10. PEPCID [Concomitant]
  11. ZOFRAN [Concomitant]
  12. ATIVAN [Concomitant]
  13. PROTONIX [Concomitant]
  14. LEVOXYL [Concomitant]
  15. AMOXICILLIN [Concomitant]
  16. HYDROCODONE/ACETAMINOPHEN [Concomitant]
  17. DIFLUCAN [Concomitant]
  18. PHENADOZ [Concomitant]

REACTIONS (2)
  - Deep vein thrombosis [None]
  - Pulmonary embolism [None]
